FAERS Safety Report 17725776 (Version 1)
Quarter: 2020Q2

REPORT INFORMATION
  Report Type: Spontaneous
  Country: US (occurrence: US)
  Receive Date: 20200429
  Receipt Date: 20200429
  Transmission Date: 20200714
  Serious: No
  Sender: FDA-Public Use
  Company Number: US-TEVA-2020-US-1228336

PATIENT
  Age: 88 Year
  Sex: Female

DRUGS (1)
  1. ALBUTEROL SULFATE HFA TEVA [Suspect]
     Active Substance: ALBUTEROL SULFATE
     Indication: ASTHMA
     Dosage: PRESCRIBED A DOSE OF 2 PUFFS BY MOUTH EVERY 4 HOURS, SHE STATED I ONLY USE IT WHEN I NEED IT.
     Route: 048

REACTIONS (3)
  - Inappropriate schedule of product administration [Unknown]
  - Wrong technique in product usage process [Unknown]
  - Burning sensation [Not Recovered/Not Resolved]

NARRATIVE: CASE EVENT DATE: 20200420
